FAERS Safety Report 9887613 (Version 1)
Quarter: 2013Q4

REPORT INFORMATION
  Report Type: Spontaneous
  Country: US (occurrence: None)
  Receive Date: 20131223
  Receipt Date: 20131223
  Transmission Date: 20140711
  Serious: No
  Sender: FDA-Public Use
  Company Number: 217407LEO

PATIENT
  Sex: Male

DRUGS (1)
  1. PICATO (0.015%, GEL) [Suspect]
     Indication: DERMATITIS PAPILLARIS CAPILLITII
     Dosage: 1 IN 1 D
     Route: 061
     Dates: start: 20120410, end: 20120413

REACTIONS (1)
  - Drug ineffective [None]
